FAERS Safety Report 8142515-9 (Version None)
Quarter: 2012Q1

REPORT INFORMATION
  Report Type: 
  Country: None (occurrence: None)
  Receive Date: 20120216
  Receipt Date: 20120207
  Transmission Date: 20120608
  Serious: Yes (Hospitalization, Other)
  Sender: FDA-Public Use
  Company Number: JP-ASTRAZENECA-2012SE05711

PATIENT
  Age: 58 Year
  Sex: Female

DRUGS (8)
  1. CLONAZEPAM [Concomitant]
     Route: 048
  2. ZYPREXA [Concomitant]
     Route: 048
  3. LITHIUM CARBONATE [Concomitant]
     Route: 048
  4. LENDORMIN [Concomitant]
     Route: 048
  5. ASPIRIN [Concomitant]
     Route: 048
  6. SEROQUEL [Suspect]
     Indication: BIPOLAR I DISORDER
     Route: 048
  7. TRAZODONE HYDROCHLORIDE [Concomitant]
     Route: 048
  8. LORAMET [Concomitant]
     Route: 048

REACTIONS (3)
  - INTRACARDIAC THROMBUS [None]
  - OFF LABEL USE [None]
  - CEREBRAL INFARCTION [None]
